FAERS Safety Report 4893710-3 (Version None)
Quarter: 2006Q1

REPORT INFORMATION
  Report Type: 
  Country: None (occurrence: None)
  Receive Date: 20060127
  Receipt Date: 20060123
  Transmission Date: 20060701
  Serious: Yes (Life-Threatening, Hospitalization)
  Sender: FDA-Public Use
  Company Number: BR-GLAXOSMITHKLINE-A0590934A

PATIENT
  Age: 16 Year
  Sex: Female

DRUGS (3)
  1. DIGOXINA [Suspect]
     Indication: SUICIDE ATTEMPT
     Dosage: .25MG UNKNOWN
     Route: 065
     Dates: start: 20060123, end: 20060123
  2. DICLOFENAC [Suspect]
     Indication: SUICIDE ATTEMPT
     Dates: start: 20060123
  3. HYDROCHLOROTHIAZIDE [Suspect]
     Indication: SUICIDE ATTEMPT
     Dates: start: 20060123

REACTIONS (2)
  - SOMNOLENCE [None]
  - SUICIDE ATTEMPT [None]
